FAERS Safety Report 6533067-5 (Version None)
Quarter: 2010Q1

REPORT INFORMATION
  Report Type: 
  Country: None (occurrence: None)
  Receive Date: 20100111
  Receipt Date: 20100107
  Transmission Date: 20100710
  Serious: Yes (Hospitalization)
  Sender: FDA-Public Use
  Company Number: US-BRISTOL-MYERS SQUIBB COMPANY-14925879

PATIENT
  Age: 19 Year
  Sex: Female

DRUGS (2)
  1. HYDROXYUREA [Suspect]
  2. EXJADE [Suspect]

REACTIONS (2)
  - SICKLE CELL ANAEMIA WITH CRISIS [None]
  - TREATMENT NONCOMPLIANCE [None]
